FAERS Safety Report 5020521-0 (Version None)
Quarter: 2006Q2

REPORT INFORMATION
  Report Type: 
  Country: None (occurrence: None)
  Receive Date: 20060606
  Receipt Date: 20060606
  Transmission Date: 20061013
  Serious: Yes (Hospitalization)
  Sender: FDA-Public Use
  Company Number: None

PATIENT
  Age: 59 Year
  Sex: Male
  Weight: 130.6359 kg

DRUGS (11)
  1. VANCOMYCIN [Suspect]
     Indication: STAPHYLOCOCCAL INFECTION
     Dosage: 1500 MG Q12HRS IV
     Route: 042
     Dates: start: 20060424, end: 20060425
  2. LISINOPRIL [Suspect]
     Indication: HYPERTENSION
     Dosage: 200 MG DAILY PO
     Route: 048
     Dates: start: 20060207, end: 20060605
  3. FELODIPINE [Concomitant]
  4. FUROSEMIDE [Concomitant]
  5. INSULIN [Concomitant]
  6. LEVETIRACETAM [Concomitant]
  7. LISINOPRIL [Concomitant]
  8. OMEPRAZOLE [Concomitant]
  9. PAROXETINE HCL [Concomitant]
  10. POTASSIUM [Concomitant]
  11. SIMVASTATIN [Concomitant]

REACTIONS (1)
  - RENAL FAILURE ACUTE [None]
